FAERS Safety Report 24981636 (Version 1)
Quarter: 2025Q1

REPORT INFORMATION
  Report Type: Spontaneous
  Country: US (occurrence: None)
  Receive Date: 20250217
  Receipt Date: 20250217
  Transmission Date: 20250408
  Serious: Yes (Death)
  Sender: FDA-CTU
  Company Number: None

PATIENT
  Sex: Female

DRUGS (4)
  1. REPATHA [Suspect]
     Active Substance: EVOLOCUMAB
  2. DULOXETINE [Concomitant]
     Active Substance: DULOXETINE
     Dates: start: 20250217, end: 20250217
  3. VITAMINS [Concomitant]
     Active Substance: VITAMINS
     Dates: start: 20250217, end: 20250217
  4. PAXIL [Concomitant]
     Active Substance: PAROXETINE HYDROCHLORIDE
     Dates: start: 20250217, end: 20250217

REACTIONS (1)
  - Death [None]
